FAERS Safety Report 12606939 (Version 1)
Quarter: 2016Q3

REPORT INFORMATION
  Report Type: Spontaneous
  Country: US (occurrence: US)
  Receive Date: 20160729
  Receipt Date: 20160729
  Transmission Date: 20161109
  Serious: Yes (Hospitalization)
  Sender: FDA-Public Use
  Company Number: US-IGSA-GTI003773

PATIENT
  Age: 30 Year
  Sex: Female
  Weight: 60 kg

DRUGS (23)
  1. GAMUNEX-C [Suspect]
     Active Substance: HUMAN IMMUNOGLOBULIN G
     Indication: POSTURAL ORTHOSTATIC TACHYCARDIA SYNDROME
     Route: 042
     Dates: start: 20151216
  2. FISH OIL [Concomitant]
     Active Substance: FISH OIL
  3. ZOMIG [Concomitant]
     Active Substance: ZOLMITRIPTAN
  4. MULTIPLE VITAMINS [Concomitant]
     Active Substance: VITAMINS
  5. ORAL CONTRACEPTIVE NOS [Concomitant]
     Active Substance: UNSPECIFIED INGREDIENT
  6. HYDROXYZINE [Concomitant]
     Active Substance: HYDROXYZINE\HYDROXYZINE HYDROCHLORIDE
  7. GAMUNEX-C [Suspect]
     Active Substance: HUMAN IMMUNOGLOBULIN G
     Indication: POSTURAL ORTHOSTATIC TACHYCARDIA SYNDROME
     Route: 042
     Dates: start: 20151119
  8. L-GLUTAMINE /00503401/ [Concomitant]
     Active Substance: GLUTAMINE
  9. BENADRYL [Concomitant]
     Active Substance: DIPHENHYDRAMINE HYDROCHLORIDE
  10. LISINOPRIL. [Concomitant]
     Active Substance: LISINOPRIL
  11. VESICARE [Concomitant]
     Active Substance: SOLIFENACIN SUCCINATE
  12. FOLIC ACID. [Concomitant]
     Active Substance: FOLIC ACID
  13. GAMUNEX-C [Suspect]
     Active Substance: HUMAN IMMUNOGLOBULIN G
     Indication: POSTURAL ORTHOSTATIC TACHYCARDIA SYNDROME
     Route: 042
     Dates: start: 201510
  14. TRAMADOL. [Concomitant]
     Active Substance: TRAMADOL
  15. DILTIAZEM. [Concomitant]
     Active Substance: DILTIAZEM
  16. GAMUNEX-C [Suspect]
     Active Substance: HUMAN IMMUNOGLOBULIN G
     Indication: POSTURAL ORTHOSTATIC TACHYCARDIA SYNDROME
     Route: 042
     Dates: start: 20151120
  17. MAXALT [Concomitant]
     Active Substance: RIZATRIPTAN BENZOATE
  18. TOPAMAX [Concomitant]
     Active Substance: TOPIRAMATE
  19. TYLENOL [Concomitant]
     Active Substance: ACETAMINOPHEN
  20. GAMUNEX-C [Suspect]
     Active Substance: HUMAN IMMUNOGLOBULIN G
     Indication: POSTURAL ORTHOSTATIC TACHYCARDIA SYNDROME
     Route: 042
     Dates: start: 20151118
  21. QUERCETIN [Concomitant]
     Active Substance: QUERCETIN
  22. ORENCIA [Concomitant]
     Active Substance: ABATACEPT
     Route: 058
  23. SEASONIQUE [Concomitant]
     Active Substance: ETHINYL ESTRADIOL\LEVONORGESTREL

REACTIONS (1)
  - Pulmonary embolism [Not Recovered/Not Resolved]

NARRATIVE: CASE EVENT DATE: 20151216
